FAERS Safety Report 7928502-1 (Version None)
Quarter: 2011Q4

REPORT INFORMATION
  Report Type: 
  Country: None (occurrence: None)
  Receive Date: 20111118
  Receipt Date: 20111108
  Transmission Date: 20120403
  Serious: Yes (Hospitalization, Other)
  Sender: FDA-Public Use
  Company Number: FR-ELI_LILLY_AND_COMPANY-FR201111002300

PATIENT
  Sex: Female

DRUGS (9)
  1. ESCITALOPRAM OXALATE [Concomitant]
     Indication: DEPRESSION
     Dosage: 1 DF, QD
     Dates: start: 20110713, end: 20110910
  2. VITAMIN B1 TAB [Concomitant]
     Route: 048
  3. OXAZEPAM [Concomitant]
     Dosage: UNK
     Route: 048
  4. ZYPREXA [Suspect]
     Indication: BIPOLAR I DISORDER
     Dosage: 7.5 MG, QD
     Route: 048
  5. VITAMIN B6 [Concomitant]
     Route: 048
  6. NICOBION [Concomitant]
     Route: 048
  7. IMOVANE [Concomitant]
     Route: 048
  8. TRAMADOL HCL [Concomitant]
     Indication: PAIN
     Dosage: 100 MG, QD
     Route: 048
     Dates: start: 20110907, end: 20110910
  9. HALDOL [Concomitant]
     Indication: BIPOLAR I DISORDER
     Dosage: 5 MG, QD

REACTIONS (3)
  - HYPONATRAEMIA [None]
  - POLYDIPSIA PSYCHOGENIC [None]
  - GRAND MAL CONVULSION [None]
